FAERS Safety Report 8787721 (Version 1)
Quarter: 2012Q4

REPORT INFORMATION
  Report Type: 
  Country: US (occurrence: US)
  Receive Date: 20120914
  Receipt Date: 20120914
  Transmission Date: 20130627
  Serious: No
  Sender: FDA-Public Use
  Company Number: US-VERTEX PHARMACEUTICAL INC.-AE-2012-008192

PATIENT

DRUGS (4)
  1. INCIVEK [Suspect]
     Indication: HEPATITIS C
     Route: 048
     Dates: start: 201205
  2. PEGASYS [Concomitant]
     Indication: HEPATITIS C
     Route: 058
     Dates: start: 201205
  3. RIBASPHERE [Concomitant]
     Indication: HEPATITIS C
     Route: 048
     Dates: start: 201205
  4. NORTRYPTYLINE HCL [Concomitant]

REACTIONS (8)
  - Migraine [Unknown]
  - Insomnia [Unknown]
  - Constipation [Unknown]
  - Anaemia [Unknown]
  - Rash generalised [Unknown]
  - Anorectal discomfort [Unknown]
  - Nausea [Unknown]
  - Vomiting [Unknown]
